FAERS Safety Report 7516979-5 (Version None)
Quarter: 2011Q2

REPORT INFORMATION
  Report Type: 
  Country: None (occurrence: None)
  Receive Date: 20110502
  Receipt Date: 20110225
  Transmission Date: 20111010
  Serious: Yes (Other)
  Sender: FDA-Public Use
  Company Number: AMAG201100040

PATIENT
  Age: 40 Year
  Sex: Female
  Weight: 122.4 kg

DRUGS (9)
  1. FLEXERIL [Concomitant]
  2. FERAHEME [Suspect]
     Indication: IRON DEFICIENCY ANAEMIA
     Dosage: 510 MG, SINGLE, INTRAVENOUS
     Route: 042
     Dates: start: 20110217, end: 20110217
  3. ABILIFY [Concomitant]
  4. WELLBUTRIN XL [Concomitant]
  5. ZANTAC [Concomitant]
  6. ACETAMINOPHEN [Concomitant]
  7. HYDROCODONE BITARTRATE AND ACETAMINOPHEN (HYDROCODONE BITARTRATE, PARA [Concomitant]
  8. IBUPROFEN [Concomitant]
  9. PAXIL [Concomitant]

REACTIONS (6)
  - NAUSEA [None]
  - HYPERSENSITIVITY [None]
  - ABDOMINAL PAIN [None]
  - DYSPNOEA [None]
  - HYPERTENSION [None]
  - FLUSHING [None]
